FAERS Safety Report 8773005 (Version 3)
Quarter: 2012Q4

REPORT INFORMATION
  Report Type: Report from Study
  Country: DE (occurrence: DE)
  Receive Date: 20120907
  Receipt Date: 20121002
  Transmission Date: 20130627
  Serious: Yes (Hospitalization)
  Sender: FDA-Public Use
  Company Number: DE-ABBOTT-12P-062-0975325-00

PATIENT
  Age: 36 Year
  Sex: Male
  Weight: 72 kg

DRUGS (2)
  1. KALETRA [Suspect]
     Indication: HIV INFECTION
     Route: 048
     Dates: start: 20100119
  2. TRUVADA [Concomitant]
     Indication: HIV INFECTION
     Dosage: 200/245 mg
     Dates: start: 20100115

REACTIONS (2)
  - Syphilis [Recovered/Resolved]
  - Facial paresis [Recovered/Resolved]
